FAERS Safety Report 9336887 (Version 1)
Quarter: 2013Q2

REPORT INFORMATION
  Report Type: Spontaneous
  Country: US (occurrence: US)
  Receive Date: 20130607
  Receipt Date: 20130607
  Transmission Date: 20140414
  Serious: No
  Sender: FDA-Public Use
  Company Number: US-BAYER-2013-067048

PATIENT
  Age: 27 Year
  Sex: Female

DRUGS (1)
  1. MAGNEVIST [Suspect]
     Dosage: 18 ML, ONCE
     Route: 042
     Dates: start: 20130530, end: 20130530

REACTIONS (1)
  - Urticaria [None]
